FAERS Safety Report 9938141 (Version 1)
Quarter: 2014Q1

REPORT INFORMATION
  Report Type: Spontaneous
  Country: PL (occurrence: PL)
  Receive Date: 20140303
  Receipt Date: 20140303
  Transmission Date: 20141002
  Serious: Yes (Other)
  Sender: FDA-Public Use
  Company Number: PL-ACCORD-022213

PATIENT
  Age: 23 Year
  Sex: Male

DRUGS (2)
  1. QUETIAPINE [Suspect]
     Indication: PRODUCT USED FOR UNKNOWN INDICATION
     Dosage: FROM 2 YEARS
  2. CITALOPRAM [Interacting]
     Indication: PANIC ATTACK
     Dosage: FOR SEVERAL MONTHS

REACTIONS (1)
  - Drug interaction [Unknown]
